FAERS Safety Report 9471145 (Version 1)
Quarter: 2013Q3

REPORT INFORMATION
  Report Type: Spontaneous
  Country: US (occurrence: None)
  Receive Date: 20130816
  Receipt Date: 20130816
  Transmission Date: 20140515
  Serious: Yes (Hospitalization)
  Sender: FDA-Public Use
  Company Number: 2013AP007268

PATIENT
  Age: 54 Year
  Sex: Male

DRUGS (6)
  1. PREDNISOLONE SYRUP [Suspect]
     Indication: DIFFUSE LARGE B-CELL LYMPHOMA
  2. RITUXIMAB [Suspect]
     Indication: DIFFUSE LARGE B-CELL LYMPHOMA
  3. CYCLOPHOSPHAMIDE [Suspect]
     Indication: DIFFUSE LARGE B-CELL LYMPHOMA
  4. DOXORUBICIN [Suspect]
     Indication: DIFFUSE LARGE B-CELL LYMPHOMA
  5. VINCRISTINE [Suspect]
     Indication: DIFFUSE LARGE B-CELL LYMPHOMA
  6. PEGFILGRASTIM [Concomitant]

REACTIONS (4)
  - Colitis [None]
  - Clostridium difficile colitis [None]
  - Stomatitis [None]
  - Febrile neutropenia [None]
